FAERS Safety Report 14890119 (Version 1)
Quarter: 2018Q2

REPORT INFORMATION
  Report Type: Spontaneous
  Country: US (occurrence: US)
  Receive Date: 20180514
  Receipt Date: 20180514
  Transmission Date: 20180711
  Serious: Yes (Life-Threatening, Other)
  Sender: FDA-Public Use
  Company Number: US-STRIDES ARCOLAB LIMITED-2017SP007612

PATIENT

DRUGS (3)
  1. CEFTAROLINE [Concomitant]
     Active Substance: CEFTAROLINE
     Dosage: 600 MG, EVERY 8 HOURS
     Route: 042
  2. VANCOMYCIN [Suspect]
     Active Substance: VANCOMYCIN
     Indication: STAPHYLOCOCCAL INFECTION
     Dosage: 1000 MG, EVERY 12 HRS
     Route: 065
  3. CEFTAROLINE [Concomitant]
     Active Substance: CEFTAROLINE
     Indication: STAPHYLOCOCCAL INFECTION
     Dosage: 600 MG, EVERY 12 HRS
     Route: 042

REACTIONS (1)
  - Drug ineffective [Unknown]
